FAERS Safety Report 5282387-3 (Version None)
Quarter: 2007Q1

REPORT INFORMATION
  Report Type: 
  Country: None (occurrence: None)
  Receive Date: 20070326
  Receipt Date: 20070309
  Transmission Date: 20070707
  Serious: Yes (Hospitalization)
  Sender: FDA-Public Use
  Company Number: 2007JP000304

PATIENT
  Age: 63 Year
  Sex: Female
  Weight: 34 kg

DRUGS (18)
  1. PROGRAF [Suspect]
     Indication: CORD BLOOD TRANSPLANT THERAPY
     Dosage: 0.8 MG, UID/QD, IV DRIP
     Route: 041
     Dates: start: 20060907, end: 20061026
  2. PROGRAF [Suspect]
     Indication: CORD BLOOD TRANSPLANT THERAPY
     Dosage: SEE IMAGE
     Route: 048
     Dates: start: 20061027, end: 20070101
  3. PROGRAF [Suspect]
     Indication: CORD BLOOD TRANSPLANT THERAPY
     Dosage: SEE IMAGE
     Route: 048
     Dates: start: 20070103
  4. PREDNISOLONE [Suspect]
     Indication: CORD BLOOD TRANSPLANT THERAPY
     Dosage: SEE IMAGE
     Route: 048
     Dates: start: 20060923, end: 20060929
  5. PREDNISOLONE [Suspect]
     Indication: CORD BLOOD TRANSPLANT THERAPY
     Dosage: SEE IMAGE
     Route: 048
     Dates: start: 20060930, end: 20061004
  6. PREDNISOLONE [Suspect]
     Indication: CORD BLOOD TRANSPLANT THERAPY
     Dosage: SEE IMAGE
     Route: 048
     Dates: start: 20061005, end: 20061008
  7. PREDNISOLONE [Suspect]
     Indication: CORD BLOOD TRANSPLANT THERAPY
     Dosage: SEE IMAGE
     Route: 048
     Dates: start: 20061009, end: 20061013
  8. PREDNISOLONE [Suspect]
     Indication: CORD BLOOD TRANSPLANT THERAPY
     Dosage: SEE IMAGE
     Route: 048
     Dates: start: 20061014, end: 20061015
  9. PREDNISOLONE [Suspect]
     Indication: CORD BLOOD TRANSPLANT THERAPY
     Dosage: SEE IMAGE
     Route: 048
     Dates: start: 20061016, end: 20061021
  10. PREDNISOLONE [Suspect]
     Indication: CORD BLOOD TRANSPLANT THERAPY
     Dosage: SEE IMAGE
     Route: 048
     Dates: start: 20061022, end: 20061022
  11. PREDNISOLONE [Suspect]
     Indication: CORD BLOOD TRANSPLANT THERAPY
     Dosage: SEE IMAGE
     Route: 048
     Dates: start: 20061023, end: 20061025
  12. PREDNISOLONE [Suspect]
     Indication: CORD BLOOD TRANSPLANT THERAPY
     Dosage: SEE IMAGE
     Route: 048
     Dates: start: 20061026, end: 20061101
  13. PREDNISOLONE [Suspect]
     Indication: CORD BLOOD TRANSPLANT THERAPY
     Dosage: SEE IMAGE
     Route: 048
     Dates: start: 20061102
  14. BAKTAR (SULFAMETHOXAZOLE, TRIMETHOPRIM) TABLET [Concomitant]
  15. ITRIZOLE (ITRACONAZOLE) CAPSULE [Concomitant]
  16. ALPRAZOLAM [Concomitant]
  17. LANSOPRAZOLE [Concomitant]
  18. ISOSORBIDE MONONITRATE [Concomitant]

REACTIONS (6)
  - ANXIETY DISORDER [None]
  - BLOOD FIBRINOGEN DECREASED [None]
  - CYTOMEGALOVIRUS VIRAEMIA [None]
  - GASTROENTERITIS [None]
  - GRAFT VERSUS HOST DISEASE [None]
  - HYPOCOAGULABLE STATE [None]
